FAERS Safety Report 4382317-2 (Version None)
Quarter: 2004Q2

REPORT INFORMATION
  Report Type: 
  Country: None (occurrence: None)
  Receive Date: 20040616
  Receipt Date: 20040604
  Transmission Date: 20050107
  Serious: Yes (Hospitalization, Other)
  Sender: FDA-Public Use
  Company Number: HQWYE263604JUN04

PATIENT
  Age: 64 Year
  Sex: Male

DRUGS (11)
  1. RAPAMUNE [Suspect]
     Indication: PROPHYLAXIS AGAINST TRANSPLANT REJECTION
     Dosage: 1.5 MG 1X PER 1 DAY
     Route: 048
  2. AMLODIPINE BESYLATE [Concomitant]
  3. ATENOLOL [Concomitant]
  4. COVERSYL (PERINDOPRIL) [Concomitant]
  5. BACTRIM [Concomitant]
  6. ATORVASTATIN (ATORVASTATIN) [Concomitant]
  7. MAGNESIUM ASPARTATE (MAGNESIUM ASPARTATE) [Concomitant]
  8. ASPIRIN [Concomitant]
  9. MIXTARD HUMAN 70/30 [Concomitant]
  10. FUROSEMIDE [Concomitant]
  11. FOLATE SODIUM (FOLATE SODIUM) [Concomitant]

REACTIONS (5)
  - CAROTID ARTERY ANEURYSM [None]
  - CLUSTER HEADACHE [None]
  - HEADACHE [None]
  - PARAESTHESIA [None]
  - TENSION HEADACHE [None]
